FAERS Safety Report 16157873 (Version 2)
Quarter: 2019Q2

REPORT INFORMATION
  Report Type: Spontaneous
  Country: US (occurrence: US)
  Receive Date: 20190404
  Receipt Date: 20190408
  Transmission Date: 20190711
  Serious: Yes (Disabling, Other)
  Sender: FDA-Public Use
  Company Number: US-PFIZER INC-2019140053

PATIENT
  Age: 64 Year
  Sex: Female
  Weight: 99.79 kg

DRUGS (2)
  1. SILDENAFIL CITRATE. [Suspect]
     Active Substance: SILDENAFIL CITRATE
     Indication: PULMONARY HYPERTENSION
     Dosage: 10 MG, 3X/DAY
     Dates: start: 20190215
  2. SILDENAFIL CITRATE. [Suspect]
     Active Substance: SILDENAFIL CITRATE
     Indication: RIGHT VENTRICULAR FAILURE
     Dosage: 20 MG, 3X/DAY

REACTIONS (5)
  - Pain [Not Recovered/Not Resolved]
  - Dyspnoea [Not Recovered/Not Resolved]
  - Condition aggravated [Not Recovered/Not Resolved]
  - Gait disturbance [Not Recovered/Not Resolved]
  - Drug ineffective [Not Recovered/Not Resolved]

NARRATIVE: CASE EVENT DATE: 201902
